FAERS Safety Report 4657611-8 (Version None)
Quarter: 2005Q2

REPORT INFORMATION
  Report Type: 
  Country: None (occurrence: None)
  Receive Date: 20050506
  Receipt Date: 20050420
  Transmission Date: 20051028
  Serious: Yes (Other)
  Sender: FDA-Public Use
  Company Number: 141478USA

PATIENT
  Age: 74 Year
  Sex: Male

DRUGS (1)
  1. NAPROXEN [Suspect]
     Dates: start: 20040601

REACTIONS (2)
  - CEREBROVASCULAR ACCIDENT [None]
  - MYOCARDIAL INFARCTION [None]
